FAERS Safety Report 6437608-8 (Version None)
Quarter: 2009Q4

REPORT INFORMATION
  Report Type: 
  Country: None (occurrence: None)
  Receive Date: 20091109
  Receipt Date: 20091029
  Transmission Date: 20100525
  Serious: Yes (Other)
  Sender: FDA-Public Use
  Company Number: 2009SP033374

PATIENT
  Age: 88 Year
  Sex: Female
  Weight: 55 kg

DRUGS (5)
  1. MIRTAZAPINE [Suspect]
     Indication: DEPRESSION
     Dosage: 30 MG;QD
     Dates: start: 20030101
  2. OMEPRAZOLE [Suspect]
     Indication: GASTRITIS EROSIVE
     Dosage: 20 MG;QD;PO
     Route: 048
     Dates: start: 20060101
  3. AMLODIPINE [Concomitant]
  4. BISOPROLOL [Concomitant]
  5. LORAZEPAM [Concomitant]

REACTIONS (6)
  - ASTHENIA [None]
  - CONFUSIONAL STATE [None]
  - HYPONATRAEMIA [None]
  - MUSCULAR WEAKNESS [None]
  - NAUSEA [None]
  - VOMITING [None]
